FAERS Safety Report 22070675 (Version 4)
Quarter: 2023Q2

REPORT INFORMATION
  Report Type: Report from Study
  Country: CO (occurrence: None)
  Receive Date: 20230307
  Receipt Date: 20230509
  Transmission Date: 20230721
  Serious: Yes (Other)
  Sender: FDA-Public Use
  Company Number: CO-Eisai Medical Research-EC-2023-135333

PATIENT
  Age: 65 Year
  Sex: Female
  Weight: 54 kg

DRUGS (14)
  1. LENVATINIB [Suspect]
     Active Substance: LENVATINIB
     Indication: Clear cell renal cell carcinoma
     Route: 048
     Dates: start: 20221219, end: 20230130
  2. LENVATINIB [Suspect]
     Active Substance: LENVATINIB
     Route: 048
     Dates: start: 20230131, end: 20230202
  3. LENVATINIB [Suspect]
     Active Substance: LENVATINIB
     Route: 048
     Dates: start: 20230222
  4. QUAVONLIMAB [Suspect]
     Active Substance: QUAVONLIMAB
     Indication: Clear cell renal cell carcinoma
     Dosage: MK-1308A (QUAVONLIMAB (MK-1308) 25 MG (+) PEMBROLIZUMAB (MK-3475) 400 MG)
     Route: 041
     Dates: start: 20221219, end: 20221219
  5. PEMBROLIZUMAB [Suspect]
     Active Substance: PEMBROLIZUMAB
     Dosage: MK-1308A (QUAVONLIMAB (MK-1308) 25 MG (+) PEMBROLIZUMAB (MK-3475) 400 MG)
     Route: 041
     Dates: start: 20230131
  6. METFORMIN [Concomitant]
     Active Substance: METFORMIN HYDROCHLORIDE
     Dates: start: 202106, end: 20230426
  7. AMLODIPINE [Concomitant]
     Active Substance: AMLODIPINE BESYLATE
     Dates: start: 201806
  8. DOXAZOSIN [Concomitant]
     Active Substance: DOXAZOSIN MESYLATE
     Dates: start: 202209, end: 20230111
  9. ESOMEPRAZOLE [Concomitant]
     Active Substance: ESOMEPRAZOLE
     Dates: start: 202209, end: 20230426
  10. QUETIAPINE FUMARATE [Concomitant]
     Active Substance: QUETIAPINE FUMARATE
     Dates: start: 202209, end: 20230426
  11. LOSARTAN [Concomitant]
     Active Substance: LOSARTAN
     Dates: start: 20221228
  12. FUROSEMIDE [Concomitant]
     Active Substance: FUROSEMIDE
     Dates: start: 20221228
  13. ACETAMINOPHEN [Concomitant]
     Active Substance: ACETAMINOPHEN
     Dates: start: 20230104
  14. TRAMADOL HYDROCHLORIDE [Concomitant]
     Active Substance: TRAMADOL HYDROCHLORIDE
     Dates: start: 20230111, end: 20230426

REACTIONS (1)
  - Mucosal inflammation [Recovered/Resolved]

NARRATIVE: CASE EVENT DATE: 20230124
